FAERS Safety Report 13837295 (Version 1)
Quarter: 2017Q3

REPORT INFORMATION
  Report Type: Spontaneous
  Country: US (occurrence: US)
  Receive Date: 20170804
  Receipt Date: 20170804
  Transmission Date: 20171127
  Serious: No
  Sender: FDA-Public Use
  Company Number: US-ROCHE-1078583

PATIENT
  Sex: Female

DRUGS (1)
  1. BONIVA [Suspect]
     Active Substance: IBANDRONATE SODIUM
     Indication: PRODUCT USED FOR UNKNOWN INDICATION
     Route: 048
     Dates: start: 20120601

REACTIONS (4)
  - Nausea [Not Recovered/Not Resolved]
  - Faeces discoloured [Unknown]
  - Diarrhoea [Not Recovered/Not Resolved]
  - Influenza like illness [Unknown]
